FAERS Safety Report 6671685-4 (Version None)
Quarter: 2010Q2

REPORT INFORMATION
  Report Type: 
  Country: None (occurrence: None)
  Receive Date: 20100407
  Receipt Date: 20100331
  Transmission Date: 20101027
  Serious: Yes (Other)
  Sender: FDA-Public Use
  Company Number: US-TEVA-229654USA

PATIENT
  Sex: Female

DRUGS (1)
  1. TORASEMIDE 5 MG, 10 MG, 20 MG + 100 MG TABLETS [Suspect]

REACTIONS (1)
  - ANAPHYLACTIC REACTION [None]
